FAERS Safety Report 9335645 (Version 1)
Quarter: 2013Q2

REPORT INFORMATION
  Report Type: Spontaneous
  Country: IL (occurrence: IL)
  Receive Date: 20130605
  Receipt Date: 20130605
  Transmission Date: 20140414
  Serious: Yes (Hospitalization)
  Sender: FDA-Public Use
  Company Number: IL-TEVA-408800ISR

PATIENT
  Age: 5 Decade
  Sex: Male

DRUGS (8)
  1. OLANZAPINE [Suspect]
     Indication: BIPOLAR DISORDER
     Dosage: 15 MILLIGRAM DAILY; TAKEN PRIOR TO AUGUST 2000 EPISODE
     Route: 065
  2. QUETIAPINE [Suspect]
     Indication: BIPOLAR DISORDER
     Dosage: 600 MILLIGRAM DAILY; RECURRENT EPISODE OF SOMNAMBULISM OCCURRED WITH THIS DRUG
     Route: 065
     Dates: start: 2010
  3. ASENAPINE [Suspect]
     Indication: BIPOLAR DISORDER
     Dosage: INCREASED GRADUALLY TO 15 MG/DAY
     Route: 065
     Dates: start: 201111
  4. LITHIUM [Concomitant]
     Indication: BIPOLAR DISORDER
     Dosage: 1800 MILLIGRAM DAILY;
     Route: 065
  5. VALPROATE [Concomitant]
     Indication: BIPOLAR DISORDER
     Dosage: 3000 MILLIGRAM DAILY;
     Route: 065
  6. CARBAMAZEPINE [Concomitant]
     Indication: BIPOLAR DISORDER
     Dosage: 1000 MILLIGRAM DAILY;
     Route: 065
  7. RISPERIDONE [Concomitant]
     Indication: BIPOLAR DISORDER
     Route: 065
  8. ZIPRASIDONE [Concomitant]
     Indication: BIPOLAR DISORDER
     Route: 065

REACTIONS (2)
  - Mania [Unknown]
  - Somnambulism [Recovered/Resolved]
